FAERS Safety Report 14611771 (Version 1)
Quarter: 2018Q1

REPORT INFORMATION
  Report Type: Spontaneous
  Country: EG (occurrence: EG)
  Receive Date: 20180308
  Receipt Date: 20180308
  Transmission Date: 20180509
  Serious: Yes (Disabling, Other)
  Sender: FDA-Public Use
  Company Number: EG-NOVOPROD-588389

PATIENT
  Age: 40 Year
  Sex: Female
  Weight: 95 kg

DRUGS (5)
  1. MILGA [Concomitant]
     Indication: NEUROPATHY PERIPHERAL
     Dosage: AT 1 A.M AND AT 1 P.M, STARTED 2 YEARS AGO
     Route: 048
  2. MIXTARD HUMAN 70/30 [Suspect]
     Active Substance: INSULIN HUMAN
     Indication: DIABETES MELLITUS
     Dosage: 70 IU, QD (50 IU A.M AND  20 IU P.M STARTED 5 YEARS AGO)
     Route: 058
  3. DEPOVIT B12 [Concomitant]
     Indication: NEUROPATHY PERIPHERAL
     Dosage: 1 EVERY 3 DAYS, STARTED 3 TO 4 YEARS AGO
     Route: 030
  4. NEUROVIT                           /00056102/ [Concomitant]
     Indication: NEUROPATHY PERIPHERAL
     Dosage: AT 1 A.M AND  AT 1 P.M ,STARTED 15 DAYS AGO
     Route: 048
  5. NEUROTON                           /00434802/ [Concomitant]
     Indication: NEUROPATHY PERIPHERAL
     Dosage: AT 1 A.M AND AT 1 P.M, STARTED 10 YEARS AGO
     Route: 048

REACTIONS (3)
  - Blood glucose increased [Not Recovered/Not Resolved]
  - Spinal cord disorder [Not Recovered/Not Resolved]
  - Limb discomfort [Not Recovered/Not Resolved]
